FAERS Safety Report 19462966 (Version 3)
Quarter: 2021Q3

REPORT INFORMATION
  Report Type: Spontaneous
  Country: US (occurrence: US)
  Receive Date: 20210625
  Receipt Date: 20210806
  Transmission Date: 20211014
  Serious: Yes (Other)
  Sender: FDA-Public Use
  Company Number: US-TEVA-2021-US-1925393

PATIENT
  Age: 83 Year
  Sex: Female
  Weight: 77.56 kg

DRUGS (9)
  1. GLYBURIDE?METFORMIN [Concomitant]
     Dosage: DOSAGE: 120 MG
     Route: 065
  2. HYDROCHLOROTHIAZIDE. [Concomitant]
     Active Substance: HYDROCHLOROTHIAZIDE
     Dosage: DOSAGE: 30 MG
     Route: 065
  3. ATENOLOL. [Concomitant]
     Active Substance: ATENOLOL
     Indication: HYPERTENSION
     Dosage: DOSAGE 25 MG TWO TABLETS TWICE A DAY
     Route: 048
     Dates: start: 20140204, end: 20150305
  4. ISORDIL [Concomitant]
     Active Substance: ISOSORBIDE DINITRATE
     Route: 065
  5. GABAPENTIN. [Concomitant]
     Active Substance: GABAPENTIN
     Dosage: DOSAGE: 300 MG
     Route: 065
  6. METFORMIN HYDROCHLORIDE. [Concomitant]
     Active Substance: METFORMIN HYDROCHLORIDE
     Indication: TYPE 2 DIABETES MELLITUS
     Dosage: DOSAGE: 1000 MG TWO TABLETS TWICE A DAY
     Route: 048
     Dates: start: 20140214, end: 20141205
  7. VALSARTAN/HYDROCHLOROTHIAZIDE ACTAVIS [Suspect]
     Active Substance: HYDROCHLOROTHIAZIDE\VALSARTAN
     Dosage: 320 MG VALSARTAN/12.5MG HYDROCHLOROTHIAZIDE
     Route: 065
     Dates: start: 20130905, end: 20140114
  8. ZOLPIDEM TARTRATE. [Concomitant]
     Active Substance: ZOLPIDEM TARTRATE
     Dosage: DOSAGE: 30 MG
     Route: 065
  9. VALSARTAN/HYDROCHLOROTHIAZIDE ACTAVIS [Suspect]
     Active Substance: HYDROCHLOROTHIAZIDE\VALSARTAN
     Indication: HYPERTENSION
     Dosage: 320 MG VALSARTAN/12.5MG HYDROCHLOROTHIAZIDE
     Route: 048
     Dates: start: 20140204, end: 20150106

REACTIONS (2)
  - Rectal haemorrhage [Recovered/Resolved]
  - Colorectal adenocarcinoma [Recovered/Resolved]
